FAERS Safety Report 5564027-9 (Version None)
Quarter: 2007Q4

REPORT INFORMATION
  Report Type: 
  Country: None (occurrence: None)
  Receive Date: 20071217
  Receipt Date: 20071205
  Transmission Date: 20080405
  Serious: Yes (Other)
  Sender: FDA-Public Use
  Company Number: US-PFIZER INC-2007069514

PATIENT
  Sex: Male

DRUGS (1)
  1. LYRICA [Suspect]
     Indication: FIBROMYALGIA
     Dates: start: 20060103, end: 20060301

REACTIONS (4)
  - ARTHROPOD BITE [None]
  - ASTHENIA [None]
  - BLOOD GLUCOSE INCREASED [None]
  - RENAL PAIN [None]
